FAERS Safety Report 4772252-X (Version None)
Quarter: 2005Q3

REPORT INFORMATION
  Report Type: 
  Country: None (occurrence: None)
  Receive Date: 20050919
  Receipt Date: 20050422
  Transmission Date: 20060218
  Serious: No
  Sender: FDA-Public Use
  Company Number: US-BRISTOL-MYERS SQUIBB COMPANY-12944617

PATIENT
  Age: 66 Year
  Sex: Female
  Weight: 101 kg

DRUGS (1)
  1. DEFINITY [Suspect]
     Route: 040
     Dates: start: 20050422, end: 20050422

REACTIONS (1)
  - DYSPNOEA [None]
